FAERS Safety Report 6641939-6 (Version None)
Quarter: 2010Q1

REPORT INFORMATION
  Report Type: 
  Country: None (occurrence: None)
  Receive Date: 20100319
  Receipt Date: 20100315
  Transmission Date: 20100710
  Serious: Yes (Death)
  Sender: FDA-Public Use
  Company Number: PHEH2010US02571

PATIENT
  Sex: Male
  Weight: 76.19 kg

DRUGS (1)
  1. GLEEVEC [Suspect]
     Indication: CYTOGENETIC ABNORMALITY
     Dosage: 400 MG, QD
     Route: 048
     Dates: start: 20070214, end: 20090318

REACTIONS (1)
  - DEATH [None]
